FAERS Safety Report 19179661 (Version 1)
Quarter: 2021Q2

REPORT INFORMATION
  Report Type: Spontaneous
  Country: GB (occurrence: GB)
  Receive Date: 20210426
  Receipt Date: 20210426
  Transmission Date: 20210717
  Serious: Yes (Other)
  Sender: FDA-Public Use
  Company Number: GB-TEVA-2021-GB-1903903

PATIENT
  Age: 67 Year
  Sex: Male
  Weight: 64.86 kg

DRUGS (1)
  1. CARDIDE SR PROLONGED RELEASE [Suspect]
     Active Substance: INDAPAMIDE
     Indication: HYPERTENSION
     Dosage: 1.5 MG
     Route: 048
     Dates: start: 20210409, end: 20210412

REACTIONS (3)
  - Testis discomfort [Unknown]
  - Bladder discomfort [Unknown]
  - Pollakiuria [Recovering/Resolving]

NARRATIVE: CASE EVENT DATE: 20210409
